FAERS Safety Report 18676907 (Version 1)
Quarter: 2020Q4

REPORT INFORMATION
  Report Type: Spontaneous
  Country: FR (occurrence: FR)
  Receive Date: 20201229
  Receipt Date: 20201229
  Transmission Date: 20210114
  Serious: Yes (Hospitalization)
  Sender: FDA-Public Use
  Company Number: FR-MYLANLABS-2020M1104142

PATIENT
  Age: 41 Year
  Sex: Female
  Weight: 86 kg

DRUGS (17)
  1. CEFAZOLINE MYLAN [Concomitant]
     Active Substance: CEFAZOLIN SODIUM
     Dosage: UNK
  2. OXYNORMORO [Concomitant]
     Active Substance: OXYCODONE HYDROCHLORIDE
     Dosage: UNK
  3. CALCIDOSE VITAMINE D [Concomitant]
     Active Substance: CALCIUM\CHOLECALCIFEROL
     Dosage: UNK
  4. NEFOPAM MEDISOL [Suspect]
     Active Substance: NEFOPAM HYDROCHLORIDE
     Indication: PAIN
     Dosage: 2 DOSAGE FORM, QD
     Route: 042
     Dates: start: 20200412, end: 20200416
  5. RUBOZINC [Concomitant]
     Active Substance: ZINC GLUCONATE
     Dosage: UNK
  6. ORBENINE [Suspect]
     Active Substance: CLOXACILLIN SODIUM
     Indication: SPONDYLITIS
     Dosage: 12 GRAM, QD
     Route: 042
     Dates: start: 20200414, end: 20200416
  7. CEFTRIAXON PROTECH [Concomitant]
     Dosage: UNK
  8. OXYCODONE MYLAN [Concomitant]
     Active Substance: OXYCODONE
     Dosage: UNK
  9. METRONIDAZOLE B BRAUN [Concomitant]
     Active Substance: METRONIDAZOLE
     Dosage: UNK
  10. LANSOPRAZOLE MYLAN [Suspect]
     Active Substance: LANSOPRAZOLE
     Indication: GASTROOESOPHAGEAL REFLUX DISEASE
     Dosage: 15 MILLIGRAM, QD
     Route: 048
     Dates: start: 20200414, end: 20200415
  11. LOVENOX [Concomitant]
     Active Substance: ENOXAPARIN SODIUM
     Dosage: UNK
  12. PARACETAMOL B BRAUN [Concomitant]
     Active Substance: ACETAMINOPHEN
     Dosage: UNK
  13. CONTRAMAL [Concomitant]
     Active Substance: TRAMADOL HYDROCHLORIDE
     Dosage: UNK
  14. BENERVA [Concomitant]
     Active Substance: THIAMINE HYDROCHLORIDE
     Dosage: UNK
  15. TARDYFERON B9                      /00023601/ [Concomitant]
     Active Substance: FERROUS SULFATE\FOLIC ACID
     Dosage: UNK
  16. VANCOMYCINE MYLAN                  /00314402/ [Concomitant]
     Active Substance: VANCOMYCIN HYDROCHLORIDE
     Dosage: UNK
  17. URSOLVAN [Concomitant]
     Active Substance: URSODIOL
     Dosage: UNK

REACTIONS (5)
  - Rash [Recovered/Resolved]
  - Urticaria [Recovered/Resolved]
  - Eosinophilia [Recovered/Resolved]
  - Cholestasis [Recovered/Resolved]
  - Hepatocellular injury [Recovered/Resolved]

NARRATIVE: CASE EVENT DATE: 20200416
